FAERS Safety Report 20602496 (Version 1)
Quarter: 2022Q1

REPORT INFORMATION
  Report Type: Spontaneous
  Country: US (occurrence: None)
  Receive Date: 20220316
  Receipt Date: 20220316
  Transmission Date: 20220423
  Serious: Yes (Hospitalization, Other)
  Sender: FDA-Public Use
  Company Number: US-ROCHE-3043489

PATIENT
  Age: 48 Year
  Sex: Female

DRUGS (7)
  1. KADCYLA [Suspect]
     Active Substance: ADO-TRASTUZUMAB EMTANSINE
     Indication: HER2 positive breast cancer
     Route: 042
     Dates: start: 201706
  2. HERCEPTIN [Suspect]
     Active Substance: TRASTUZUMAB
     Indication: HER2 positive breast cancer
     Route: 041
     Dates: start: 201611, end: 201703
  3. PERJETA [Suspect]
     Active Substance: PERTUZUMAB
     Indication: HER2 positive breast cancer
     Route: 042
     Dates: start: 201611, end: 201703
  4. TAXOTERE [Suspect]
     Active Substance: DOCETAXEL
     Indication: HER2 positive breast cancer
     Dosage: 6 ROUNDS.
     Route: 042
     Dates: start: 201611, end: 201703
  5. CARBOPLATIN [Suspect]
     Active Substance: CARBOPLATIN
     Indication: HER2 positive breast cancer
     Dosage: 6 ROUNDS
     Route: 042
     Dates: start: 201611, end: 201703
  6. KEYTRUDA [Concomitant]
     Active Substance: PEMBROLIZUMAB
     Indication: HER2 positive breast cancer
     Route: 042
     Dates: start: 201706, end: 201806
  7. METOPROLOL [Concomitant]
     Active Substance: METOPROLOL
     Indication: Tachycardia
     Route: 048
     Dates: start: 20220228

REACTIONS (18)
  - Tachycardia [Unknown]
  - Rib fracture [Unknown]
  - Epistaxis [Unknown]
  - Deep vein thrombosis [Unknown]
  - Illness [Unknown]
  - Neuropathy peripheral [Unknown]
  - Alopecia [Unknown]
  - Weight decreased [Unknown]
  - Asthenia [Unknown]
  - Fatigue [Unknown]
  - Exercise tolerance decreased [Unknown]
  - Nausea [Unknown]
  - Vomiting [Unknown]
  - Immunodeficiency [Unknown]
  - Hepatitis [Unknown]
  - Nephritis [Unknown]
  - Thyroiditis [Unknown]
  - Chemotherapy [Unknown]

NARRATIVE: CASE EVENT DATE: 20180601
